FAERS Safety Report 6761314-3 (Version None)
Quarter: 2010Q2

REPORT INFORMATION
  Report Type: 
  Country: None (occurrence: None)
  Receive Date: 20100608
  Receipt Date: 20100211
  Transmission Date: 20101027
  Serious: Yes (Other)
  Sender: FDA-Public Use
  Company Number: PHHY2010FI08255

PATIENT
  Sex: Female

DRUGS (2)
  1. EXELON [Suspect]
     Indication: DEMENTIA ALZHEIMER'S TYPE
     Dosage: 4,6MG/24 HOURS
     Route: 062
     Dates: start: 20090101
  2. EXELON [Suspect]
     Dosage: 9.5 MG/24 HOURS
     Route: 062

REACTIONS (4)
  - HERNIA OBSTRUCTIVE [None]
  - NAUSEA [None]
  - PALPITATIONS [None]
  - WRONG TECHNIQUE IN DRUG USAGE PROCESS [None]
